FAERS Safety Report 8265160-3 (Version None)
Quarter: 2012Q2

REPORT INFORMATION
  Report Type: 
  Country: None (occurrence: None)
  Receive Date: 20120406
  Receipt Date: 20120327
  Transmission Date: 20120825
  Serious: Yes (Other)
  Sender: FDA-Public Use
  Company Number: FR-ROCHE-1054543

PATIENT
  Sex: Female

DRUGS (11)
  1. XYZAL [Concomitant]
  2. CIPROFIBRATE [Concomitant]
     Indication: BLOOD CHOLESTEROL
     Route: 048
     Dates: start: 19870101
  3. EXFORGE [Suspect]
     Indication: PRODUCT USED FOR UNKNOWN INDICATION
     Dosage: 5MG / 160MG
  4. IRBESARTAN [Concomitant]
     Dates: start: 20111201
  5. LUCENTIS [Suspect]
     Indication: AGE-RELATED MACULAR DEGENERATION
     Dosage: FREQUENCY:EVERY MONTH AND A HALF
     Route: 050
     Dates: start: 20110601
  6. ESIDRIX [Suspect]
     Indication: PRODUCT USED FOR UNKNOWN INDICATION
  7. ATARAX [Concomitant]
  8. BISOPROLOL FUMARATE [Concomitant]
     Indication: HYPERTENSION
  9. AMIODARONE [Concomitant]
     Indication: ARRHYTHMIA
     Dosage: 0.5 TABLET DAILY
     Route: 048
     Dates: start: 19870101
  10. IRBESARTAN [Concomitant]
     Dates: start: 20111101
  11. SYMBICORT [Concomitant]

REACTIONS (3)
  - BLOOD PRESSURE INCREASED [None]
  - BLOOD PRESSURE SYSTOLIC INCREASED [None]
  - HYPERTENSION [None]
